FAERS Safety Report 7419099-3 (Version None)
Quarter: 2011Q2

REPORT INFORMATION
  Report Type: 
  Country: None (occurrence: None)
  Receive Date: 20110415
  Receipt Date: 20101018
  Transmission Date: 20111010
  Serious: Yes (Hospitalization)
  Sender: FDA-Public Use
  Company Number: US-BAYER-201031327NA

PATIENT
  Age: 47 Year
  Sex: Female
  Weight: 72.562 kg

DRUGS (4)
  1. YASMIN [Suspect]
     Indication: UTERINE HAEMORRHAGE
  2. LEVOTHYROXINE SODIUM [Concomitant]
  3. YAZ [Suspect]
     Indication: UTERINE HAEMORRHAGE
     Dosage: UNK, NA
     Dates: start: 20070101
  4. LEVOXYL [Concomitant]

REACTIONS (4)
  - HYPOAESTHESIA [None]
  - PAIN IN EXTREMITY [None]
  - INJURY [None]
  - PULMONARY EMBOLISM [None]
